FAERS Safety Report 5159017-4 (Version None)
Quarter: 2006Q4

REPORT INFORMATION
  Report Type: 
  Country: None (occurrence: None)
  Receive Date: 20061117
  Receipt Date: 20061110
  Transmission Date: 20070319
  Serious: Yes (Other)
  Sender: FDA-Public Use
  Company Number: SPV1-2006-01608

PATIENT
  Age: 9 Year
  Sex: Male
  Weight: 28.6 kg

DRUGS (11)
  1. DAYTRANA [Suspect]
     Indication: ATTENTION DEFICIT/HYPERACTIVITY DISORDER
     Dosage: 10 MG X 2, TRANSDERMAL; 10 MG, TRANSDERMAL
     Route: 062
     Dates: start: 20061027, end: 20061107
  2. DAYTRANA [Suspect]
     Indication: ATTENTION DEFICIT/HYPERACTIVITY DISORDER
     Dosage: 10 MG X 2, TRANSDERMAL; 10 MG, TRANSDERMAL
     Route: 062
     Dates: start: 20061108
  3. TRACROLIMUS (TACROLIMUS) [Concomitant]
  4. VALGANCICLOVIR HCL [Concomitant]
  5. METOCLOPRAMIDE [Concomitant]
  6. PRILOSEC /00661201/(OMEPRAZOLE) [Concomitant]
  7. KEPPRA [Concomitant]
  8. TRILEPTAL [Concomitant]
  9. MULTIVITAMINS, COMBINATIONS [Concomitant]
  10. MAGNESIUM (MAGNESIUM) [Concomitant]
  11. BACTRIM/0086101/(SULFAMETHOXAZOLE, TRIMETHOPRIM) [Concomitant]

REACTIONS (2)
  - CONDITION AGGRAVATED [None]
  - CONVULSION [None]
